FAERS Safety Report 25203553 (Version 1)
Quarter: 2025Q2

REPORT INFORMATION
  Report Type: Report from Study
  Country: US (occurrence: US)
  Receive Date: 20250416
  Receipt Date: 20250416
  Transmission Date: 20250717
  Serious: Yes (Other)
  Sender: AMGEN
  Company Number: US-AMGEN-USASL2025056500

PATIENT
  Age: 61 Year
  Sex: Female

DRUGS (5)
  1. EVENITY [Suspect]
     Active Substance: ROMOSOZUMAB-AQQG
     Indication: Osteoporosis
     Route: 065
     Dates: start: 20250212, end: 20250212
  2. METOPROLOL [Concomitant]
     Active Substance: METOPROLOL
     Route: 065
     Dates: end: 20250312
  3. TYLENOL [Concomitant]
     Active Substance: ACETAMINOPHEN
     Route: 065
  4. MECLIZINE [Concomitant]
     Active Substance: MECLIZINE HYDROCHLORIDE
  5. ZYRTEC [Concomitant]
     Active Substance: CETIRIZINE HYDROCHLORIDE
     Dates: end: 20250312

REACTIONS (23)
  - Myocardial infarction [Unknown]
  - Cerebrovascular accident [Unknown]
  - Tunnel vision [Recovering/Resolving]
  - Hypoglycaemia [Unknown]
  - Hypotension [Unknown]
  - Respiratory syncytial virus infection [Unknown]
  - Chest pain [Unknown]
  - Pollakiuria [Unknown]
  - Hypersomnia [Recovering/Resolving]
  - Periorbital swelling [Unknown]
  - Arthralgia [Unknown]
  - Burning sensation [Unknown]
  - Dyspnoea [Unknown]
  - Abdominal pain upper [Unknown]
  - Peripheral swelling [Unknown]
  - Tachycardia [Unknown]
  - Weight decreased [Unknown]
  - Pyrexia [Recovering/Resolving]
  - Vestibular migraine [Recovering/Resolving]
  - Blood glucose increased [Unknown]
  - Muscular weakness [Unknown]
  - Speech disorder [Unknown]
  - Incorrect dose administered [Unknown]

NARRATIVE: CASE EVENT DATE: 20250101
